FAERS Safety Report 12158382 (Version 1)
Quarter: 2016Q1

REPORT INFORMATION
  Report Type: Spontaneous
  Country: US (occurrence: US)
  Receive Date: 20160308
  Receipt Date: 20160308
  Transmission Date: 20160526
  Serious: No
  Sender: FDA-Public Use
  Company Number: US-JNJFOC-20150211320

PATIENT
  Age: 69 Year
  Sex: Male
  Weight: 101 kg

DRUGS (15)
  1. OMEGA-3 ACIDS [Concomitant]
     Active Substance: OMEGA-3 FATTY ACIDS
  2. GARLIC. [Concomitant]
     Active Substance: GARLIC
  3. COENZYME Q10 [Concomitant]
     Active Substance: UBIDECARENONE
  4. VITAMIN D [Concomitant]
     Active Substance: CHOLECALCIFEROL
  5. FINASTERIDE. [Concomitant]
     Active Substance: FINASTERIDE
  6. TAURINE [Concomitant]
     Active Substance: TAURINE
  7. LOSARTAN. [Concomitant]
     Active Substance: LOSARTAN
  8. VITAMIN C [Concomitant]
     Active Substance: ASCORBIC ACID
  9. VITAMIN B [Concomitant]
     Active Substance: VITAMIN B
  10. IMBRUVICA [Suspect]
     Active Substance: IBRUTINIB
     Indication: MANTLE CELL LYMPHOMA
     Route: 048
     Dates: start: 20141115, end: 20150122
  11. SELENIUM [Concomitant]
     Active Substance: SELENIUM
  12. ASPIRIN. [Concomitant]
     Active Substance: ASPIRIN
  13. SAW PALMETTO [Concomitant]
     Active Substance: SAW PALMETTO
  14. LOVASTATIN. [Concomitant]
     Active Substance: LOVASTATIN
  15. N ACETYLCYSTEIN [Concomitant]
     Active Substance: ACETYLCYSTEINE

REACTIONS (2)
  - Chromaturia [Recovered/Resolved]
  - Abdominal pain upper [Recovered/Resolved]

NARRATIVE: CASE EVENT DATE: 201501
